FAERS Safety Report 7509847-6 (Version None)
Quarter: 2011Q2

REPORT INFORMATION
  Report Type: 
  Country: None (occurrence: None)
  Receive Date: 20110527
  Receipt Date: 20110526
  Transmission Date: 20111010
  Serious: Yes (Other)
  Sender: FDA-Public Use
  Company Number: B0690525A

PATIENT
  Sex: Female

DRUGS (1)
  1. CEFTAZIDIME [Suspect]
     Route: 042

REACTIONS (12)
  - RASH [None]
  - ERYTHEMA [None]
  - EYE DISCHARGE [None]
  - ANAPHYLACTIC REACTION [None]
  - WHEEZING [None]
  - CELLULITIS [None]
  - ANGIOEDEMA [None]
  - LACRIMATION INCREASED [None]
  - CONJUNCTIVITIS [None]
  - CYANOSIS [None]
  - DERMATITIS ATOPIC [None]
  - URTICARIA [None]
